FAERS Safety Report 13834816 (Version 2)
Quarter: 2017Q3

REPORT INFORMATION
  Report Type: Spontaneous
  Country: IN (occurrence: IN)
  Receive Date: 20170804
  Receipt Date: 20170815
  Transmission Date: 20171127
  Serious: Yes (Other)
  Sender: FDA-Public Use
  Company Number: IN-PFIZER INC-2017086527

PATIENT
  Age: 60 Year
  Sex: Male

DRUGS (2)
  1. PALBACE [Suspect]
     Active Substance: PALBOCICLIB
     Indication: LIPOSARCOMA
     Dosage: 125 MG, 1X/DAY
     Route: 048
     Dates: start: 20161228
  2. PALBACE [Suspect]
     Active Substance: PALBOCICLIB
     Dosage: 100 MG, UNK
     Route: 048
     Dates: start: 201702

REACTIONS (10)
  - Asthenia [Unknown]
  - Decreased appetite [Unknown]
  - Ageusia [Unknown]
  - Alopecia [Unknown]
  - Asphyxia [Unknown]
  - Cough [Unknown]
  - Haemoglobin decreased [Unknown]
  - Full blood count decreased [Unknown]
  - Nausea [Unknown]
  - Drug ineffective for unapproved indication [Unknown]
